FAERS Safety Report 11241600 (Version 1)
Quarter: 2015Q3

REPORT INFORMATION
  Report Type: Spontaneous
  Country: AU (occurrence: AU)
  Receive Date: 20150706
  Receipt Date: 20150706
  Transmission Date: 20151125
  Serious: Yes (Hospitalization, Other)
  Sender: FDA-Public Use
  Company Number: AU-COREPHARMA LLC-2015COR00131

PATIENT
  Age: 58 Year
  Sex: Female

DRUGS (5)
  1. FLUCONAZOLE. [Suspect]
     Active Substance: FLUCONAZOLE
     Dosage: 10000 MG, UNK
  2. ETHANOL [Suspect]
     Active Substance: ALCOHOL
  3. PARACETAMOL [Suspect]
     Active Substance: ACETAMINOPHEN
  4. ALPRAZOLAM. [Suspect]
     Active Substance: ALPRAZOLAM
  5. OXAZEPAM. [Concomitant]
     Active Substance: OXAZEPAM

REACTIONS (5)
  - Hypoxia [Recovered/Resolved]
  - Pneumonia aspiration [Recovered/Resolved]
  - Overdose [Recovered/Resolved]
  - Sedation [Recovered/Resolved]
  - Drug interaction [Recovered/Resolved]
